FAERS Safety Report 7982346-3 (Version None)
Quarter: 2011Q4

REPORT INFORMATION
  Report Type: 
  Country: None (occurrence: None)
  Receive Date: 20111215
  Receipt Date: 20111202
  Transmission Date: 20120403
  Serious: Yes (Other)
  Sender: FDA-Public Use
  Company Number: PHHY2011PL106666

PATIENT
  Age: 40 Year
  Sex: Male

DRUGS (1)
  1. CERTICAN [Suspect]
     Dosage: 1.5 MG, BID

REACTIONS (3)
  - DIABETIC FOOT [None]
  - ANAEMIA [None]
  - BLOOD CREATININE INCREASED [None]
